FAERS Safety Report 5689864-1 (Version None)
Quarter: 2008Q1

REPORT INFORMATION
  Report Type: 
  Country: None (occurrence: None)
  Receive Date: 20080331
  Receipt Date: 20080331
  Transmission Date: 20080703
  Serious: Yes (Hospitalization)
  Sender: FDA-Public Use
  Company Number: None

PATIENT
  Sex: Female
  Weight: 121 kg

DRUGS (11)
  1. CYTARABINE [Suspect]
     Dosage: 70 MG
  2. DAUNORUBICIN HCL [Suspect]
     Dosage: 200 MG
  3. DEXAMETHASONE [Suspect]
     Dosage: 280 MG
  4. METHOTREXATE [Suspect]
     Dosage: 15 MG
  5. PEG-L-ASPARAGINASE (K-H) [Suspect]
     Dosage: 4700 UNIT
  6. VINCRISTINE SULFATE [Suspect]
     Dosage: 8 MG
  7. ACETAMINOPHEN [Concomitant]
  8. CEFEPIME [Concomitant]
  9. COTRIMOXAZOLE [Concomitant]
  10. MEROPENEM [Concomitant]
  11. TOBRAMYCIN [Concomitant]

REACTIONS (10)
  - BONE MARROW FAILURE [None]
  - CARDIOPULMONARY FAILURE [None]
  - HEPATIC FUNCTION ABNORMAL [None]
  - HEPATIC STEATOSIS [None]
  - LACTIC ACIDOSIS [None]
  - MALAISE [None]
  - METABOLIC ACIDOSIS [None]
  - RENAL DISORDER [None]
  - RENAL FAILURE ACUTE [None]
  - VOMITING [None]
